FAERS Safety Report 17704608 (Version 2)
Quarter: 2022Q3

REPORT INFORMATION
  Report Type: Spontaneous
  Country: FR (occurrence: FR)
  Receive Date: 20200424
  Receipt Date: 20220915
  Transmission Date: 20221026
  Serious: Yes (Death, Hospitalization, Other)
  Sender: FDA-Public Use
  Company Number: None

PATIENT
  Age: 87 Year
  Sex: Male

DRUGS (13)
  1. FUROSEMIDE [Interacting]
     Active Substance: FUROSEMIDE
     Indication: Hypertension
     Dosage: 40 MG, QD (1 TABLET IN THE MORNING)
     Route: 048
     Dates: end: 20191221
  2. NICORANDIL [Interacting]
     Active Substance: NICORANDIL
     Indication: Myocardial ischaemia
     Dosage: 40 MG, QD (1 TABLET MORNING AND EVENING)
     Route: 048
     Dates: end: 20191221
  3. PERINDOPRIL [Interacting]
     Active Substance: PERINDOPRIL
     Indication: Hypertension
     Dosage: 5 MG, QD (1 TABLET IN THE MORNING)
     Route: 048
     Dates: end: 20191221
  4. AMLODIPINE [Interacting]
     Active Substance: AMLODIPINE BESYLATE
     Indication: Hypertension
     Dosage: 10 MG, QD (1 TABLET MORNING AND EVENING)
     Route: 048
     Dates: end: 20191221
  5. SOTALOL [Interacting]
     Active Substance: SOTALOL
     Indication: Product used for unknown indication
     Dosage: 160 MG, QD
     Route: 048
  6. URAPIDIL [Interacting]
     Active Substance: URAPIDIL
     Indication: Hypertension
     Dosage: 60 MG, QD (1 TABLET MORNING AND EVENING)
     Route: 048
     Dates: end: 20191221
  7. SOTALOL HYDROCHLORIDE [Interacting]
     Active Substance: SOTALOL HYDROCHLORIDE
     Indication: Atrial fibrillation
     Dosage: 160 MG, QD (1 TABLET MORNING AND EVENING)
     Route: 048
  8. ATORVASTATIN [Concomitant]
     Active Substance: ATORVASTATIN
     Indication: Product used for unknown indication
     Dosage: 10 MG, QD (1 TABLET IN THE EVENING)
     Route: 048
  9. PREVISCAN [Concomitant]
     Indication: Atrial fibrillation
     Dosage: 20 MG
     Route: 048
     Dates: end: 20191221
  10. NOREPINEPHRINE [Concomitant]
     Active Substance: NOREPINEPHRINE
     Indication: Product used for unknown indication
     Dosage: UNK
     Route: 065
  11. URSODIOL [Concomitant]
     Active Substance: URSODIOL
     Indication: Product used for unknown indication
     Dosage: UNK, BID
     Route: 065
  12. CHOLECALCIFEROL [Concomitant]
     Active Substance: CHOLECALCIFEROL
     Indication: Product used for unknown indication
     Dosage: 80000 IU (1 AMPOULE PER MONTH)
     Route: 065
  13. FERROUS SULFATE [Concomitant]
     Active Substance: FERROUS SULFATE
     Indication: Product used for unknown indication
     Dosage: 80 MG, QD (1 TABLET IN THE MORNING)
     Route: 065

REACTIONS (8)
  - Ventricular tachycardia [Fatal]
  - Acute kidney injury [Fatal]
  - Hypovolaemic shock [Fatal]
  - Drug interaction [Fatal]
  - Hypothermia [Unknown]
  - Bradycardia [Unknown]
  - Gastroenteritis [Unknown]
  - Oedema peripheral [Unknown]

NARRATIVE: CASE EVENT DATE: 20191221
